FAERS Safety Report 7774043-4 (Version None)
Quarter: 2011Q3

REPORT INFORMATION
  Report Type: 
  Country: None (occurrence: None)
  Receive Date: 20110923
  Receipt Date: 20110919
  Transmission Date: 20111222
  Serious: Yes (Other)
  Sender: FDA-Public Use
  Company Number: US-PFIZER INC-2011118733

PATIENT
  Sex: Female

DRUGS (5)
  1. EFFEXOR [Suspect]
     Indication: HOT FLUSH
     Dosage: 75 MG, UNK
     Route: 048
  2. EFFEXOR [Suspect]
     Indication: DEPRESSION
  3. CARDIZEM [Suspect]
     Indication: ARRHYTHMIA
     Dosage: 360 MG, 1X/DAY
  4. COZAAR [Suspect]
     Indication: BLOOD PRESSURE ABNORMAL
     Dosage: 100 MG, 1X/DAY
     Dates: start: 20100912
  5. LISINOPRIL [Suspect]

REACTIONS (8)
  - EAR DISCOMFORT [None]
  - HYPERTENSION [None]
  - BALANCE DISORDER [None]
  - DIZZINESS [None]
  - INFLUENZA LIKE ILLNESS [None]
  - NAUSEA [None]
  - DRUG WITHDRAWAL SYNDROME [None]
  - EYE DISORDER [None]
